FAERS Safety Report 5310660-9 (Version None)
Quarter: 2007Q2

REPORT INFORMATION
  Report Type: 
  Country: None (occurrence: None)
  Receive Date: 20070428
  Receipt Date: 20070418
  Transmission Date: 20071010
  Serious: Yes (Other)
  Sender: FDA-Public Use
  Company Number: FR-PFIZER INC-2007031411

PATIENT
  Age: 42 Year
  Sex: Male

DRUGS (6)
  1. INSPRA [Suspect]
     Dates: start: 20070410
  2. ACENOCOUMAROL [Concomitant]
  3. DIGOXIN [Concomitant]
  4. RAMIPRIL [Concomitant]
  5. ATORVASTATIN CALCIUM [Concomitant]
  6. FUROSEMIDE [Concomitant]

REACTIONS (3)
  - MALAISE [None]
  - TINNITUS [None]
  - VERTIGO [None]
